FAERS Safety Report 8962769 (Version 1)
Quarter: 2012Q4

REPORT INFORMATION
  Report Type: 
  Country: US (occurrence: US)
  Receive Date: 20121214
  Receipt Date: 20121214
  Transmission Date: 20130627
  Serious: No
  Sender: FDA-Public Use
  Company Number: US-JNJFOC-20121201630

PATIENT
  Age: 58 Year
  Sex: Female
  Weight: 56.7 kg

DRUGS (4)
  1. DURAGESIC [Suspect]
     Indication: ARTHRALGIA
     Route: 062
  2. FLEXERIL [Suspect]
     Indication: PRODUCT USED FOR UNKNOWN INDICATION
     Route: 065
  3. TRAZODONE [Concomitant]
     Indication: SLEEP DISORDER
     Route: 065
  4. CARBIDOPA-LEVODOPA [Concomitant]
     Route: 065

REACTIONS (2)
  - Inappropriate schedule of drug administration [Unknown]
  - Product quality issue [Unknown]
